FAERS Safety Report 5451458-0 (Version None)
Quarter: 2007Q3

REPORT INFORMATION
  Report Type: 
  Country: None (occurrence: None)
  Receive Date: 20070913
  Receipt Date: 20070830
  Transmission Date: 20080115
  Serious: Yes (Hospitalization)
  Sender: FDA-Public Use
  Company Number: FR-ROCHE-499392

PATIENT
  Age: 68 Year
  Sex: Female
  Weight: 85 kg

DRUGS (9)
  1. GANCICLOVIR SODIUM [Suspect]
     Indication: GLIOMA
     Route: 042
     Dates: start: 20070306, end: 20070320
  2. CEREPRO [Suspect]
     Indication: GLIOMA
     Dosage: REPORTED AS: 10ML (1X 1012 VP)
     Route: 018
     Dates: start: 20070301, end: 20070301
  3. FRAGMIN [Concomitant]
     Dates: start: 20070301, end: 20070324
  4. TAHOR [Concomitant]
  5. LEVOTHYROX [Concomitant]
  6. DETENSIEL [Concomitant]
  7. NEXIUM [Concomitant]
     Dates: start: 20070303, end: 20070324
  8. PARACETAMOL [Concomitant]
     Dates: start: 20070219, end: 20070324
  9. TEATROIS [Concomitant]

REACTIONS (1)
  - VERTIGO [None]
